FAERS Safety Report 25903157 (Version 1)
Quarter: 2025Q4

REPORT INFORMATION
  Report Type: Spontaneous
  Country: US (occurrence: US)
  Receive Date: 20251009
  Receipt Date: 20251009
  Transmission Date: 20260118
  Serious: No
  Sender: PFIZER
  Company Number: US-PFIZER INC-202400030282

PATIENT
  Age: 73 Year
  Sex: Female

DRUGS (1)
  1. IBRANCE [Suspect]
     Active Substance: PALBOCICLIB
     Dosage: 125 MG, DAILY (TAKE ONE TABLET BY MOUTH DAILY W/FOOD)
     Route: 048

REACTIONS (3)
  - Bone disorder [Unknown]
  - Bone density abnormal [Unknown]
  - Throat clearing [Unknown]
